FAERS Safety Report 8181634-8 (Version None)
Quarter: 2012Q1

REPORT INFORMATION
  Report Type: 
  Country: None (occurrence: None)
  Receive Date: 20120302
  Receipt Date: 20120227
  Transmission Date: 20120608
  Serious: Yes (Other)
  Sender: FDA-Public Use
  Company Number: US-PFIZER INC-2012052702

PATIENT
  Sex: Female
  Weight: 84.8 kg

DRUGS (4)
  1. CELEBREX [Interacting]
     Indication: FOOT OPERATION
     Dosage: UNK
  2. PREMARIN [Interacting]
     Dosage: HIGHER DOSE EVERY OTHER NIGHT; SOMETIMES ONCE A WEEK
     Route: 067
     Dates: end: 20100101
  3. PREMARIN [Suspect]
     Indication: VAGINAL DISORDER
     Dosage: 0.1 MG; DAILY AT NIGHT
     Route: 067
     Dates: start: 20100101, end: 20100101
  4. CELEBREX [Interacting]
     Indication: SWELLING

REACTIONS (10)
  - FOOT OPERATION [None]
  - BLADDER DISORDER [None]
  - DRUG INTERACTION [None]
  - DYSPEPSIA [None]
  - GASTRIC DISORDER [None]
  - SWELLING [None]
  - MALAISE [None]
  - FEELING ABNORMAL [None]
  - GASTROOESOPHAGEAL REFLUX DISEASE [None]
  - ACID BASE BALANCE ABNORMAL [None]
